FAERS Safety Report 20378982 (Version 1)
Quarter: 2022Q1

REPORT INFORMATION
  Report Type: Spontaneous
  Country: US (occurrence: None)
  Receive Date: 20220125
  Receipt Date: 20220125
  Transmission Date: 20220423
  Serious: Yes (Death)
  Sender: FDA-Public Use
  Company Number: None

PATIENT
  Age: 76 Year
  Sex: Male
  Weight: 76 kg

DRUGS (1)
  1. RETACRIT [Suspect]
     Active Substance: EPOETIN ALFA-EPBX
     Indication: Anaemia
     Dosage: OTHER FREQUENCY : ONCE WEEKLY;?
     Route: 058
     Dates: start: 20190830, end: 20210125

REACTIONS (1)
  - Death [None]

NARRATIVE: CASE EVENT DATE: 20220125
